FAERS Safety Report 8486940-5 (Version None)
Quarter: 2012Q3

REPORT INFORMATION
  Report Type: 
  Country: None (occurrence: None)
  Receive Date: 20120704
  Receipt Date: 20120524
  Transmission Date: 20120928
  Serious: No
  Sender: FDA-Public Use
  Company Number: US-BAUSCH-2012BL003476

PATIENT
  Age: 74 Year
  Sex: Male

DRUGS (4)
  1. ZIRGAN [Suspect]
     Indication: HERPES OPHTHALMIC
     Route: 047
     Dates: start: 20120522, end: 20120523
  2. SYSTANE ULTRA [Concomitant]
     Indication: DRY EYE
     Route: 047
     Dates: start: 20110101
  3. AZOPT [Concomitant]
     Indication: INTRAOCULAR PRESSURE TEST
     Route: 047
     Dates: start: 20120501
  4. LUMIGAN [Concomitant]
     Indication: INTRAOCULAR PRESSURE TEST
     Route: 047
     Dates: start: 20110101

REACTIONS (1)
  - OCULAR HYPERAEMIA [None]
